FAERS Safety Report 7239126-6 (Version None)
Quarter: 2011Q1

REPORT INFORMATION
  Report Type: 
  Country: None (occurrence: None)
  Receive Date: 20110121
  Receipt Date: 20110118
  Transmission Date: 20110831
  Serious: Yes (Hospitalization, Other)
  Sender: FDA-Public Use
  Company Number: BR-PFIZER INC-2010132956

PATIENT
  Age: 44 Year
  Sex: Female
  Weight: 75 kg

DRUGS (4)
  1. CHAMPIX [Suspect]
     Indication: TOBACCO USER
     Dosage: 0.5 MG, 1X/DAY
     Route: 048
     Dates: start: 20101015
  2. CHAMPIX [Suspect]
     Dosage: 1 MG, 2X/DAY, EVERY 12 HOURS
     Route: 048
  3. RIVOTRIL [Concomitant]
     Indication: INSOMNIA
     Dosage: 1 MG, 1X/DAY
  4. SERTRALINE [Concomitant]
     Indication: DEPRESSION
     Dosage: UNK

REACTIONS (4)
  - AGITATION [None]
  - PHLEBITIS [None]
  - OEDEMA PERIPHERAL [None]
  - WEIGHT INCREASED [None]
